FAERS Safety Report 9163316 (Version 1)
Quarter: 2013Q1

REPORT INFORMATION
  Report Type: Spontaneous
  Country: US (occurrence: None)
  Receive Date: 20130222
  Receipt Date: 20130222
  Transmission Date: 20140127
  Serious: Yes (Other)
  Sender: FDA-Public Use
  Company Number: AUR-APL-2013-01512

PATIENT
  Age: 16 Year
  Sex: Female

DRUGS (1)
  1. ZIDOVUDINE [Suspect]
     Indication: HIV ASSOCIATED NEPHROPATHY

REACTIONS (12)
  - Abdominal pain [None]
  - Nausea [None]
  - Haemodialysis [None]
  - Treatment noncompliance [None]
  - Tachycardia [None]
  - Heart sounds abnormal [None]
  - Abdominal tenderness [None]
  - Hepatomegaly [None]
  - Congestive cardiomyopathy [None]
  - Pericardial effusion [None]
  - Ischaemic hepatitis [None]
  - Cardiac failure congestive [None]
